FAERS Safety Report 8396852-3 (Version None)
Quarter: 2012Q1

REPORT INFORMATION
  Report Type: 
  Country: None (occurrence: None)
  Receive Date: 20120323
  Receipt Date: 20110316
  Transmission Date: 20120608
  Serious: Yes (Other)
  Sender: FDA-Public Use
  Company Number: 163-21880-11031920

PATIENT
  Sex: Female

DRUGS (3)
  1. METOPROLOL TARTRATE [Concomitant]
  2. REVLIMID [Suspect]
     Indication: LYMPHOMA
     Dosage: 25 MG, FOR 21 DAYS, PO
     Route: 048
     Dates: start: 20100811
  3. SIMVASTATIN [Concomitant]

REACTIONS (1)
  - RASH [None]
